FAERS Safety Report 20171112 (Version 1)
Quarter: 2021Q4

REPORT INFORMATION
  Report Type: Report from Study
  Country: MX (occurrence: MX)
  Receive Date: 20211210
  Receipt Date: 20211210
  Transmission Date: 20220303
  Serious: Yes (Death)
  Sender: FDA-Public Use
  Company Number: MX-UCBSA-2021057816

PATIENT
  Sex: Female
  Weight: 70 kg

DRUGS (1)
  1. ROTIGOTINE [Suspect]
     Active Substance: ROTIGOTINE
     Indication: Parkinson^s disease
     Dosage: UNK, ONCE DAILY (QD)
     Route: 062
     Dates: start: 2018, end: 202006

REACTIONS (3)
  - Peritonitis [Fatal]
  - Myocardial infarction [Fatal]
  - Drug ineffective [Unknown]

NARRATIVE: CASE EVENT DATE: 20180101
